FAERS Safety Report 9939751 (Version 1)
Quarter: 2014Q1

REPORT INFORMATION
  Report Type: Report from Study
  Country: US (occurrence: US)
  Receive Date: 20140303
  Receipt Date: 20140303
  Transmission Date: 20141002
  Serious: No
  Sender: FDA-Public Use
  Company Number: US-ABBVIE-13P-163-1034412-00

PATIENT
  Sex: Female

DRUGS (2)
  1. HUMIRA [Suspect]
     Indication: COLITIS
     Dosage: BEGIN ON DAY 29
     Route: 058
     Dates: start: 201212
  2. HUMIRA [Suspect]
     Indication: MALABSORPTION

REACTIONS (3)
  - Pain [Unknown]
  - Dysgeusia [Unknown]
  - Parosmia [Unknown]
